FAERS Safety Report 7323759-2 (Version None)
Quarter: 2011Q1

REPORT INFORMATION
  Report Type: 
  Country: None (occurrence: None)
  Receive Date: 20110301
  Receipt Date: 20110223
  Transmission Date: 20110831
  Serious: Yes (Other)
  Sender: FDA-Public Use
  Company Number: IT-PFIZER INC-2011039447

PATIENT
  Age: 37 Year
  Sex: Male

DRUGS (3)
  1. SUNITINIB MALATE [Suspect]
     Dosage: 25 MG, 1X/DAY
     Dates: start: 20080701, end: 20080101
  2. SUNITINIB MALATE [Suspect]
     Indication: PARAGANGLION NEOPLASM
     Dosage: 50 MG DAILY, 4 WEEKS ON 2 WEEKS OFF
     Dates: start: 20080401, end: 20080101
  3. SUNITINIB MALATE [Suspect]
     Dosage: 25 MG, 1X/DAY
     Dates: start: 20081101

REACTIONS (5)
  - HAEMATURIA [None]
  - DEPRESSION [None]
  - HERPES VIRUS INFECTION [None]
  - ORAL CANDIDIASIS [None]
  - PYREXIA [None]
